FAERS Safety Report 6840939-0 (Version None)
Quarter: 2010Q3

REPORT INFORMATION
  Report Type: 
  Country: None (occurrence: None)
  Receive Date: 20100714
  Receipt Date: 20070621
  Transmission Date: 20110219
  Serious: No
  Sender: FDA-Public Use
  Company Number: US-PFIZER INC-2007052979

PATIENT
  Sex: Female
  Weight: 90.909 kg

DRUGS (5)
  1. CHANTIX [Suspect]
     Indication: SMOKING CESSATION THERAPY
     Dates: start: 20070618
  2. AVAPRO [Concomitant]
  3. AMARYL [Concomitant]
  4. SITAGLIPTIN [Concomitant]
  5. ELMIRON [Concomitant]

REACTIONS (4)
  - BACK PAIN [None]
  - HEADACHE [None]
  - MUSCULOSKELETAL STIFFNESS [None]
  - NERVOUSNESS [None]
